FAERS Safety Report 25254148 (Version 1)
Quarter: 2025Q2

REPORT INFORMATION
  Report Type: Spontaneous
  Country: IT (occurrence: IT)
  Receive Date: 20250430
  Receipt Date: 20250430
  Transmission Date: 20250717
  Serious: Yes (Other)
  Sender: UCB
  Company Number: IT-UCBSA-2025023809

PATIENT
  Age: 52 Year
  Sex: Male

DRUGS (3)
  1. LEVETIRACETAM [Suspect]
     Active Substance: LEVETIRACETAM
     Indication: Retrograde amnesia
  2. LEVETIRACETAM [Suspect]
     Active Substance: LEVETIRACETAM
     Indication: Off label use
  3. CARBAMAZEPINE [Suspect]
     Active Substance: CARBAMAZEPINE
     Indication: Retrograde amnesia
     Dosage: 400 MILLIGRAM, 2X/DAY (BID)

REACTIONS (2)
  - Temporal lobe epilepsy [Unknown]
  - Off label use [Unknown]
